FAERS Safety Report 16351327 (Version 1)
Quarter: 2019Q2

REPORT INFORMATION
  Report Type: Report from Study
  Country: KR (occurrence: KR)
  Receive Date: 20190524
  Receipt Date: 20190524
  Transmission Date: 20190711
  Serious: Yes (Death)
  Sender: FDA-Public Use
  Company Number: KR-CELLTRION INC.-2018KR023561

PATIENT

DRUGS (3)
  1. HERZUMA [Suspect]
     Active Substance: TRASTUZUMAB-PKRB
     Dosage: UNK
     Route: 042
     Dates: start: 20181016, end: 20181016
  2. NANOXEL (PACLITAXEL) (PACLITAXEL) [Suspect]
     Active Substance: PACLITAXEL
     Dosage: UNK
  3. HERZUMA [Suspect]
     Active Substance: TRASTUZUMAB-PKRB
     Indication: MALIGNANT NEOPLASM OF LACRIMAL DUCT
     Dosage: UNK
     Route: 042
     Dates: start: 20181015, end: 20181015

REACTIONS (2)
  - Pneumonitis [Fatal]
  - Off label use [Unknown]

NARRATIVE: CASE EVENT DATE: 20181020
